FAERS Safety Report 17959454 (Version 2)
Quarter: 2020Q3

REPORT INFORMATION
  Report Type: Report from Study
  Country: PE (occurrence: PE)
  Receive Date: 20200629
  Receipt Date: 20200723
  Transmission Date: 20201103
  Serious: Yes (Other)
  Sender: FDA-Public Use
  Company Number: PE-SEATTLE GENETICS-2019SGN03111

PATIENT
  Sex: Male

DRUGS (1)
  1. BRENTUXIMAB VEDOTIN [Suspect]
     Active Substance: BRENTUXIMAB VEDOTIN
     Indication: HODGKIN^S DISEASE
     Dosage: 150 MILLIGRAM
     Route: 042
     Dates: start: 20190826

REACTIONS (6)
  - Vomiting [Unknown]
  - Headache [Unknown]
  - Mass [Unknown]
  - Pain in extremity [Unknown]
  - Neoplasm [Unknown]
  - Nausea [Unknown]
